FAERS Safety Report 20923747 (Version 4)
Quarter: 2023Q4

REPORT INFORMATION
  Report Type: Other
  Country: US (occurrence: None)
  Receive Date: 20220607
  Receipt Date: 20231026
  Transmission Date: 20240109
  Serious: Yes (Hospitalization)
  Sender: FDA-Public Use
  Company Number: US-ROCHE-2027530

PATIENT
  Age: 52 Year
  Sex: Female
  Weight: 55.388 kg

DRUGS (10)
  1. RITUXAN [Suspect]
     Active Substance: RITUXIMAB
     Indication: Relapsing-remitting multiple sclerosis
     Route: 042
     Dates: start: 2015, end: 2017
  2. OCREVUS [Suspect]
     Active Substance: OCRELIZUMAB
     Indication: Secondary progressive multiple sclerosis
     Dosage: DATE OF TREATMENT:  29/NOV/2022, 22/JUN/2022, 27/APR/2023
     Route: 042
     Dates: start: 2017, end: 202010
  3. GABAPENTIN [Concomitant]
     Active Substance: GABAPENTIN
  4. BACLOFEN [Concomitant]
     Active Substance: BACLOFEN
  5. BUPROPION [Concomitant]
     Active Substance: BUPROPION
  6. IBUPROFEN [Concomitant]
     Active Substance: IBUPROFEN
  7. VITAMIN D3 [Concomitant]
     Active Substance: CHOLECALCIFEROL
  8. BIOTIN [Concomitant]
     Active Substance: BIOTIN
  9. VITAMIN B12 [Concomitant]
     Active Substance: CYANOCOBALAMIN
  10. SIMVASTATIN [Concomitant]
     Active Substance: SIMVASTATIN

REACTIONS (5)
  - Off label use [Unknown]
  - COVID-19 [Recovered/Resolved]
  - Pulmonary embolism [Recovered/Resolved]
  - Paraesthesia [Not Recovered/Not Resolved]
  - Balance disorder [Unknown]

NARRATIVE: CASE EVENT DATE: 20150101
